FAERS Safety Report 12705095 (Version 1)
Quarter: 2016Q3

REPORT INFORMATION
  Report Type: Spontaneous
  Country: FR (occurrence: FR)
  Receive Date: 20160831
  Receipt Date: 20160831
  Transmission Date: 20161109
  Serious: Yes (Other)
  Sender: FDA-Public Use
  Company Number: FR-ASTRAZENECA-2014SE47902

PATIENT
  Age: 47 Year
  Sex: Female

DRUGS (12)
  1. OXYNORM [Concomitant]
     Active Substance: OXYCODONE HYDROCHLORIDE
     Dosage: 20.0MG UNKNOWN
     Route: 048
  2. PECFENT [Concomitant]
     Active Substance: FENTANYL CITRATE
     Dosage: 100.0UG UNKNOWN
  3. ALIMTA [Concomitant]
     Active Substance: PEMETREXED DISODIUM
     Dates: start: 20131002
  4. INEXIUM [Concomitant]
     Active Substance: ESOMEPRAZOLE
     Dosage: 40.0MG UNKNOWN
     Route: 048
  5. IRESSA [Suspect]
     Active Substance: GEFITINIB
     Indication: LUNG ADENOCARCINOMA
     Route: 048
     Dates: start: 20131026, end: 20140415
  6. OXYCONTIN [Concomitant]
     Active Substance: OXYCODONE HYDROCHLORIDE
     Dosage: 80.0MG UNKNOWN
     Route: 048
     Dates: end: 20160809
  7. RELISTOR [Concomitant]
     Active Substance: METHYLNALTREXONE BROMIDE
     Dosage: 12MG/0.6ML
  8. PRIMPERAN [Concomitant]
     Active Substance: METOCLOPRAMIDE HYDROCHLORIDE
  9. TOLEXINE [Concomitant]
     Active Substance: DOXYCYCLINE
     Dates: start: 20140530
  10. CISPLATINE [Concomitant]
     Active Substance: CISPLATIN
     Dates: start: 20131002
  11. SOPHIDONE [Concomitant]
     Active Substance: HYDROMORPHONE HYDROCHLORIDE
     Dosage: 24.0MG UNKNOWN
     Route: 048
  12. TARCEVA [Suspect]
     Active Substance: ERLOTINIB HYDROCHLORIDE
     Indication: LUNG ADENOCARCINOMA
     Route: 048
     Dates: start: 20140416, end: 2014

REACTIONS (4)
  - Abdominal pain [Unknown]
  - Dermatitis acneiform [Unknown]
  - Malignant neoplasm progression [Unknown]
  - Arthralgia [Not Recovered/Not Resolved]

NARRATIVE: CASE EVENT DATE: 20131126
